FAERS Safety Report 5369662-9 (Version None)
Quarter: 2007Q2

REPORT INFORMATION
  Report Type: 
  Country: None (occurrence: None)
  Receive Date: 20070625
  Receipt Date: 20070619
  Transmission Date: 20071010
  Serious: No
  Sender: FDA-Public Use
  Company Number: GB-PFIZER INC-2007046714

PATIENT
  Age: 81 Year
  Sex: Male

DRUGS (4)
  1. FLUCONAZOLE [Suspect]
     Indication: OESOPHAGITIS
     Dosage: DAILY DOSE:50MG
     Route: 048
     Dates: start: 20061026, end: 20061120
  2. SIMVASTATIN [Interacting]
     Indication: PROPHYLAXIS
     Dosage: DAILY DOSE:40MG
     Route: 048
  3. OCTREOTIDE ACETATE [Concomitant]
  4. ACETAMINOPHEN [Concomitant]
     Route: 048

REACTIONS (1)
  - NO ADVERSE EFFECT [None]
